FAERS Safety Report 12624486 (Version 1)
Quarter: 2016Q3

REPORT INFORMATION
  Report Type: Spontaneous
  Country: PR (occurrence: PR)
  Receive Date: 20160805
  Receipt Date: 20160805
  Transmission Date: 20161109
  Serious: Yes (Hospitalization)
  Sender: FDA-Public Use
  Company Number: PR-009507513-1608USA001972

PATIENT
  Age: 52 Year
  Sex: Male

DRUGS (1)
  1. SIMVASTATIN. [Suspect]
     Active Substance: SIMVASTATIN
     Dosage: 20 MG PER DAY
     Route: 048

REACTIONS (4)
  - Pain [Unknown]
  - Platelet count decreased [Unknown]
  - Blood creatine phosphokinase increased [Unknown]
  - Lymphocyte count decreased [Unknown]
